FAERS Safety Report 8815260 (Version 1)
Quarter: 2012Q4

REPORT INFORMATION
  Report Type: 
  Country: US (occurrence: US)
  Receive Date: 20120928
  Receipt Date: 20120928
  Transmission Date: 20130627
  Serious: Yes (Disabling, Other)
  Sender: FDA-Public Use
  Company Number: US-JNJFOC-20120813774

PATIENT
  Age: 55 None
  Sex: Male

DRUGS (10)
  1. RISPERDAL CONSTA [Suspect]
     Indication: BIPOLAR I DISORDER
     Route: 030
     Dates: start: 20100517, end: 20120827
  2. RISPERDAL CONSTA [Suspect]
     Indication: SCHIZOPHRENIA
     Route: 030
     Dates: start: 20100517, end: 20120827
  3. COGENTIN [Suspect]
     Indication: EXTRAPYRAMIDAL DISORDER
     Route: 048
     Dates: start: 20120711
  4. COGENTIN [Suspect]
     Indication: EXTRAPYRAMIDAL DISORDER
     Route: 048
  5. COGENTIN [Suspect]
     Indication: EXTRAPYRAMIDAL DISORDER
     Route: 048
     Dates: start: 20120515, end: 20120529
  6. ARTANE [Suspect]
     Indication: EXTRAPYRAMIDAL DISORDER
     Route: 065
     Dates: start: 20120529, end: 20120711
  7. AMITRIPTYLINE [Concomitant]
     Indication: PRODUCT USED FOR UNKNOWN INDICATION
     Route: 048
  8. ATIVAN [Concomitant]
     Indication: PRODUCT USED FOR UNKNOWN INDICATION
     Route: 048
  9. LORAZEPAM [Concomitant]
     Indication: ANXIETY DISORDER
     Route: 065
     Dates: start: 20120621
  10. ELAVIL [Concomitant]
     Indication: INSOMNIA
     Route: 065
     Dates: start: 20120217

REACTIONS (6)
  - Extrapyramidal disorder [Not Recovered/Not Resolved]
  - Dyskinesia [Not Recovered/Not Resolved]
  - Tongue disorder [Not Recovered/Not Resolved]
  - Speech disorder [Not Recovered/Not Resolved]
  - Dysphagia [Recovered/Resolved]
  - Gastrooesophageal reflux disease [Unknown]
